FAERS Safety Report 24187014 (Version 2)
Quarter: 2024Q3

REPORT INFORMATION
  Report Type: Spontaneous
  Country: US (occurrence: US)
  Receive Date: 20240808
  Receipt Date: 20240902
  Transmission Date: 20241017
  Serious: Yes (Hospitalization, Other)
  Sender: TEVA
  Company Number: US-TEVA-VS-3228067

PATIENT
  Sex: Female

DRUGS (4)
  1. CARBOPLATIN [Suspect]
     Active Substance: CARBOPLATIN
     Indication: Bone neoplasm
     Route: 065
  2. PEMBROLIZUMAB [Suspect]
     Active Substance: PEMBROLIZUMAB
     Indication: Bone neoplasm
     Route: 065
  3. FLUOROURACIL [Suspect]
     Active Substance: FLUOROURACIL
     Indication: Bone neoplasm
     Route: 065
  4. AVAPRITINIB [Concomitant]
     Active Substance: AVAPRITINIB
     Indication: Bone neoplasm

REACTIONS (3)
  - Mucosal inflammation [Unknown]
  - Diverticulitis [Unknown]
  - Abscess [Unknown]
